FAERS Safety Report 8490886-6 (Version None)
Quarter: 2012Q2

REPORT INFORMATION
  Report Type: 
  Country: None (occurrence: None)
  Receive Date: 20120628
  Receipt Date: 20120628
  Transmission Date: 20120825
  Serious: Yes (Hospitalization)
  Sender: FDA-Public Use
  Company Number: None

PATIENT
  Age: 78 Year
  Sex: Male
  Weight: 84.7 kg

DRUGS (2)
  1. WARFARIN SODIUM [Suspect]
     Indication: ATRIAL FIBRILLATION
     Dosage: MG PO
     Route: 048
     Dates: start: 20010504, end: 20120614
  2. WARFARIN SODIUM [Suspect]
     Indication: AORTIC VALVE REPLACEMENT
     Dosage: MG PO
     Route: 048
     Dates: start: 20010504, end: 20120614

REACTIONS (4)
  - ANAEMIA [None]
  - GASTRIC ANTRAL VASCULAR ECTASIA [None]
  - UPPER GASTROINTESTINAL HAEMORRHAGE [None]
  - OESOPHAGEAL CARCINOMA [None]
